FAERS Safety Report 19771352 (Version 2)
Quarter: 2021Q3

REPORT INFORMATION
  Report Type: Spontaneous
  Country: JP (occurrence: JP)
  Receive Date: 20210831
  Receipt Date: 20210831
  Transmission Date: 20211014
  Serious: Yes (Other)
  Sender: FDA-Public Use
  Company Number: JP-PFIZER INC-202101103868

PATIENT

DRUGS (1)
  1. GABAPEN [Suspect]
     Active Substance: GABAPENTIN
     Route: 048

REACTIONS (4)
  - Atrioventricular block [Unknown]
  - Arrhythmia [Unknown]
  - Coronavirus infection [Unknown]
  - Cardiac disorder [Unknown]
